FAERS Safety Report 19160099 (Version 1)
Quarter: 2021Q2

REPORT INFORMATION
  Report Type: Spontaneous
  Country: US (occurrence: US)
  Receive Date: 20210420
  Receipt Date: 20210420
  Transmission Date: 20210717
  Serious: Yes (Other)
  Sender: FDA-Public Use
  Company Number: NVSC2021US079903

PATIENT
  Sex: Female

DRUGS (1)
  1. EGATEN [Suspect]
     Active Substance: TRICLABENDAZOLE
     Indication: FASCIOLIASIS
     Dosage: UNK
     Route: 065

REACTIONS (6)
  - Fracture [Unknown]
  - Weight increased [Unknown]
  - Bradyphrenia [Unknown]
  - Cestode infection [Unknown]
  - Depression [Unknown]
  - Seizure [Unknown]
